FAERS Safety Report 4466264-3 (Version None)
Quarter: 2004Q4

REPORT INFORMATION
  Report Type: 
  Country: None (occurrence: None)
  Receive Date: 20041005
  Receipt Date: 20040924
  Transmission Date: 20050328
  Serious: Yes (Hospitalization)
  Sender: FDA-Public Use
  Company Number: JP-BRISTOL-MYERS SQUIBB COMPANY-12718185

PATIENT
  Sex: Male

DRUGS (3)
  1. EFAVIRENZ CAPS [Suspect]
     Indication: HIV INFECTION
     Route: 048
     Dates: start: 20030115
  2. ZERIT [Suspect]
     Indication: HIV INFECTION
     Route: 048
     Dates: start: 20030115
  3. EPIVIR [Suspect]
     Indication: HIV INFECTION
     Route: 048
     Dates: start: 20030115

REACTIONS (1)
  - GASTRIC CANCER [None]
